FAERS Safety Report 4456681-X (Version None)
Quarter: 2004Q3

REPORT INFORMATION
  Report Type: 
  Country: None (occurrence: None)
  Receive Date: 20040921
  Receipt Date: 20040910
  Transmission Date: 20050211
  Serious: Yes (Life-Threatening, Hospitalization, Other)
  Sender: FDA-Public Use
  Company Number: KII-2004-0013330

PATIENT
  Sex: Male

DRUGS (5)
  1. MORPHINE SULFATE [Suspect]
     Dosage: ORAL
     Route: 048
  2. BENZODIAZEPINE DERIVATES [Suspect]
     Dosage: ORAL
     Route: 048
  3. SSRI [Suspect]
  4. TOPIRAMATE [Concomitant]
  5. ACETYLSALICYLIC CID WITH PROPOXYPHENE [Concomitant]

REACTIONS (7)
  - BLOOD CREATINE PHOSPHOKINASE INCREASED [None]
  - BLOOD URINE PRESENT [None]
  - CHROMATURIA [None]
  - DEPRESSED LEVEL OF CONSCIOUSNESS [None]
  - MULTIPLE DRUG OVERDOSE [None]
  - SOMNOLENCE [None]
  - URINE ABNORMALITY [None]
